FAERS Safety Report 13391335 (Version 1)
Quarter: 2017Q1

REPORT INFORMATION
  Report Type: Report from Study
  Country: US (occurrence: US)
  Receive Date: 20170331
  Receipt Date: 20170331
  Transmission Date: 20170429
  Serious: Yes (Hospitalization, Other)
  Sender: FDA-Public Use
  Company Number: US-BIOGEN-2017BI00378847

PATIENT
  Age: 59 Year
  Sex: Female

DRUGS (2)
  1. AVONEX [Suspect]
     Active Substance: INTERFERON BETA-1A
     Indication: MULTIPLE SCLEROSIS
     Route: 030
     Dates: start: 19960619
  2. AVONEX [Suspect]
     Active Substance: INTERFERON BETA-1A
     Route: 030

REACTIONS (15)
  - Gait disturbance [Not Recovered/Not Resolved]
  - Multiple sclerosis relapse [Recovered/Resolved]
  - Coma [Recovered/Resolved]
  - Loss of control of legs [Recovered/Resolved]
  - Infection [Recovered/Resolved]
  - Asthma [Not Recovered/Not Resolved]
  - Respiratory failure [Recovered/Resolved]
  - Impaired self-care [Recovered/Resolved]
  - Musculoskeletal disorder [Recovered/Resolved]
  - Chills [Recovered/Resolved]
  - General symptom [Not Recovered/Not Resolved]
  - Micturition disorder [Not Recovered/Not Resolved]
  - Infectious colitis [Recovered/Resolved]
  - Hypertension [Not Recovered/Not Resolved]
  - Gastrointestinal disorder [Not Recovered/Not Resolved]

NARRATIVE: CASE EVENT DATE: 2016
